FAERS Safety Report 6490820-4 (Version None)
Quarter: 2009Q4

REPORT INFORMATION
  Report Type: 
  Country: None (occurrence: None)
  Receive Date: 20091204
  Receipt Date: 20091130
  Transmission Date: 20100525
  Serious: Yes (Hospitalization, Disabling)
  Sender: FDA-Public Use
  Company Number: 2009014303

PATIENT
  Age: 76 Year
  Sex: Female
  Weight: 46.7205 kg

DRUGS (3)
  1. TREANDA [Suspect]
     Indication: B-CELL LYMPHOMA
     Dosage: (90 MG/KG, GIVEN ON DAY 1 AND DAY 2 Q 28 DAYS), INTRAVENOUS (DAYS 1 AND 2 Q28 DAYS, INTRAVENOUS)
     Route: 042
     Dates: start: 20090804, end: 20090930
  2. TREANDA [Suspect]
     Indication: B-CELL LYMPHOMA
     Dosage: (90 MG/KG, GIVEN ON DAY 1 AND DAY 2 Q 28 DAYS), INTRAVENOUS (DAYS 1 AND 2 Q28 DAYS, INTRAVENOUS)
     Route: 042
     Dates: start: 20090701
  3. RITUXIMAB (RITUXIMAB) [Concomitant]

REACTIONS (9)
  - ASTHENIA [None]
  - DECREASED APPETITE [None]
  - FATIGUE [None]
  - INFLAMMATION [None]
  - LUNG INFILTRATION [None]
  - NAUSEA [None]
  - PNEUMOTHORAX TRAUMATIC [None]
  - PROCEDURAL COMPLICATION [None]
  - WEIGHT DECREASED [None]
